FAERS Safety Report 5330240-9 (Version None)
Quarter: 2007Q2

REPORT INFORMATION
  Report Type: 
  Country: None (occurrence: None)
  Receive Date: 20070515
  Receipt Date: 20070430
  Transmission Date: 20071010
  Serious: Yes (Hospitalization)
  Sender: FDA-Public Use
  Company Number: 012697

PATIENT
  Age: 26 Month
  Sex: Male

DRUGS (1)
  1. CLARAVIS [Suspect]
     Indication: NEUROBLASTOMA
     Dosage: 40 MG, ORAL
     Route: 048
     Dates: start: 20070105, end: 20070417

REACTIONS (4)
  - BLOOD CALCIUM INCREASED [None]
  - CONVULSION [None]
  - DEHYDRATION [None]
  - MALAISE [None]
